FAERS Safety Report 6368113-5 (Version None)
Quarter: 2009Q3

REPORT INFORMATION
  Report Type: 
  Country: None (occurrence: None)
  Receive Date: 20090922
  Receipt Date: 20090914
  Transmission Date: 20100115
  Serious: Yes (Death, Life-Threatening, Hospitalization)
  Sender: FDA-Public Use
  Company Number: PHHO2009JP10076

PATIENT
  Age: 66 Year
  Sex: Female

DRUGS (7)
  1. NILOTINIB [Suspect]
     Indication: CHRONIC MYELOID LEUKAEMIA
     Dosage: UNK
     Route: 048
     Dates: start: 20090410, end: 20090708
  2. DASATINIB [Suspect]
     Indication: CHRONIC MYELOID LEUKAEMIA
     Dosage: 50MG DAILY
     Route: 048
     Dates: start: 20090709
  3. NIZATIDINE [Concomitant]
     Dosage: UNK
     Route: 065
     Dates: start: 20090709, end: 20090725
  4. ITRACONAZOLE [Concomitant]
     Dosage: UNK
     Route: 065
     Dates: start: 20090709, end: 20090725
  5. SULFAMETHOXAZOLE AND TRIMETHOPRIM [Concomitant]
     Dosage: UNK
     Route: 065
     Dates: start: 20090709, end: 20090725
  6. ZOLPIDEM TARTRATE [Concomitant]
     Dosage: UNK
     Route: 065
     Dates: start: 20090709, end: 20090725
  7. ALLOPURINOL [Concomitant]
     Dosage: UNK
     Route: 065
     Dates: start: 20090713, end: 20090725

REACTIONS (20)
  - ANAEMIA [None]
  - ANURIA [None]
  - APALLIC SYNDROME [None]
  - ARTHRALGIA [None]
  - BLAST CELL COUNT INCREASED [None]
  - CARDIAC MASSAGE [None]
  - CARDIO-RESPIRATORY ARREST [None]
  - CHEST PAIN [None]
  - ENCEPHALOPATHY [None]
  - FEBRILE NEUTROPENIA [None]
  - GENERALISED OEDEMA [None]
  - HEART RATE DECREASED [None]
  - MULTI-ORGAN FAILURE [None]
  - OEDEMA PERIPHERAL [None]
  - PAIN IN EXTREMITY [None]
  - PLATELET COUNT DECREASED [None]
  - PLEURAL EFFUSION [None]
  - PNEUMONIA [None]
  - PYREXIA [None]
  - WHITE BLOOD CELL COUNT DECREASED [None]
